FAERS Safety Report 20080111 (Version 1)
Quarter: 2021Q4

REPORT INFORMATION
  Report Type: Report from Study
  Country: DE (occurrence: DE)
  Receive Date: 20211117
  Receipt Date: 20211117
  Transmission Date: 20220303
  Serious: Yes (Hospitalization, Other)
  Sender: FDA-Public Use
  Company Number: DE-TAKEDA-DE202033592

PATIENT
  Age: 81 Year
  Sex: Male

DRUGS (3)
  1. ANTIHEMOPHILIC FACTOR PORCINE, B-DOMAIN TRUNCATED RECOMBINANT [Suspect]
     Active Substance: ANTIHEMOPHILIC FACTOR PORCINE, B-DOMAIN TRUNCATED RECOMBINANT
     Indication: Acquired haemophilia
     Dosage: 49 INTERNATIONAL UNIT/KILOGRAM, 3X/DAY:TID
     Route: 042
     Dates: start: 20180507, end: 20180507
  2. ANTIHEMOPHILIC FACTOR PORCINE, B-DOMAIN TRUNCATED RECOMBINANT [Suspect]
     Active Substance: ANTIHEMOPHILIC FACTOR PORCINE, B-DOMAIN TRUNCATED RECOMBINANT
     Indication: Acquired haemophilia
     Dosage: 49 INTERNATIONAL UNIT/KILOGRAM, 3X/DAY:TID
     Route: 042
     Dates: start: 20180507, end: 20180507
  3. BISOPROLOL [Concomitant]
     Active Substance: BISOPROLOL
     Indication: Product used for unknown indication
     Dosage: UNK
     Route: 065

REACTIONS (2)
  - Skin abrasion [Recovered/Resolved]
  - Spontaneous haemorrhage [Recovered/Resolved]

NARRATIVE: CASE EVENT DATE: 20180929
